FAERS Safety Report 16147394 (Version 3)
Quarter: 2019Q3

REPORT INFORMATION
  Report Type: Spontaneous
  Country: US (occurrence: US)
  Receive Date: 20190402
  Receipt Date: 20190930
  Transmission Date: 20191004
  Serious: Yes (Other)
  Sender: FDA-Public Use
  Company Number: US-PFIZER INC-2019134167

PATIENT
  Age: 53 Year
  Sex: Female

DRUGS (2)
  1. OTEZLA [Concomitant]
     Active Substance: APREMILAST
     Dosage: 30 MG, 2X/DAY
     Route: 048
  2. XELJANZ XR [Suspect]
     Active Substance: TOFACITINIB CITRATE
     Dosage: 11 MG, UNK
     Dates: start: 201808

REACTIONS (5)
  - Chest pain [Unknown]
  - Herpes zoster [Unknown]
  - Pneumonia [Unknown]
  - Inflammation [Unknown]
  - Malaise [Unknown]
